FAERS Safety Report 6881816-9 (Version None)
Quarter: 2010Q3

REPORT INFORMATION
  Report Type: 
  Country: None (occurrence: None)
  Receive Date: 20100727
  Receipt Date: 20100720
  Transmission Date: 20110219
  Serious: Yes (Other)
  Sender: FDA-Public Use
  Company Number: 2010SP040121

PATIENT
  Age: 35 Year
  Sex: Female

DRUGS (2)
  1. SAPHRIS [Suspect]
     Indication: PRODUCT USED FOR UNKNOWN INDICATION
     Dosage: 5 MG; BID; SL
     Route: 060
     Dates: start: 20100501
  2. BENZODIAZEPINE [Concomitant]

REACTIONS (1)
  - AMNESIA [None]
